FAERS Safety Report 8409531-0 (Version None)
Quarter: 2012Q2

REPORT INFORMATION
  Report Type: 
  Country: None (occurrence: None)
  Receive Date: 20120529
  Receipt Date: 20041119
  Transmission Date: 20120825
  Serious: Yes (Other)
  Sender: FDA-Public Use
  Company Number: JP-2011-12492

PATIENT
  Age: 84 Year
  Sex: Male

DRUGS (4)
  1. SERMION (NICERGOLINE) [Concomitant]
  2. ARICEPT [Concomitant]
  3. PLETAL [Suspect]
     Indication: LACUNAR INFARCTION
     Dosage: 100 MG, BID, ORAL
     Route: 048
     Dates: start: 20031003, end: 20040927
  4. ADALAT [Concomitant]

REACTIONS (1)
  - GASTRIC ULCER HAEMORRHAGE [None]
